FAERS Safety Report 8565977-1 (Version None)
Quarter: 2012Q3

REPORT INFORMATION
  Report Type: 
  Country: None (occurrence: None)
  Receive Date: 20120803
  Receipt Date: 20110802
  Transmission Date: 20120928
  Serious: No
  Sender: FDA-Public Use
  Company Number: US-ABBOTT-11P-163-0842037-00

PATIENT
  Sex: Male
  Weight: 83.99 kg

DRUGS (8)
  1. MICARDIS [Concomitant]
     Indication: CARDIAC DISORDER
  2. FELODIPINE [Concomitant]
     Indication: CARDIAC DISORDER
  3. NIASPAN [Suspect]
     Indication: BLOOD CHOLESTEROL
  4. MULTI-VITAMIN [Concomitant]
     Indication: VITAMIN SUPPLEMENTATION
  5. FLEXERIL [Concomitant]
     Indication: PRODUCT USED FOR UNKNOWN INDICATION
  6. VALIUM [Concomitant]
     Indication: PRODUCT USED FOR UNKNOWN INDICATION
  7. ASPIRIN [Concomitant]
     Indication: CARDIAC DISORDER
  8. METOPROLOL TARTRATE [Concomitant]
     Indication: HYPERTENSION

REACTIONS (4)
  - FLUSHING [None]
  - SKIN BURNING SENSATION [None]
  - RASH ERYTHEMATOUS [None]
  - PRURITUS [None]
